FAERS Safety Report 12216920 (Version 5)
Quarter: 2017Q2

REPORT INFORMATION
  Report Type: Spontaneous
  Country: US (occurrence: US)
  Receive Date: 20160329
  Receipt Date: 20170424
  Transmission Date: 20170830
  Serious: Yes (Hospitalization)
  Sender: FDA-Public Use
  Company Number: US-PFIZER INC-2016127759

PATIENT
  Age: 74 Year
  Sex: Male
  Weight: 52.61 kg

DRUGS (21)
  1. TRAVATAN Z [Concomitant]
     Active Substance: TRAVOPROST
     Dosage: 2 GTT, APPLY OR INSTILL 1 DROP INTO BOTH EYES EVERY DAY
  2. VITAMIN E [Concomitant]
     Active Substance: .ALPHA.-TOCOPHEROL
     Dosage: 200 IU, UNK
  3. HYDROCHLOROTHIAZIDE. [Concomitant]
     Active Substance: HYDROCHLOROTHIAZIDE
     Dosage: 25 MG, UNK
  4. ZANTAC [Concomitant]
     Active Substance: RANITIDINE HYDROCHLORIDE
     Dosage: 150 MG (1 TABLET), TWO TIMES DAILY
     Route: 048
  5. ZOFRAN [Concomitant]
     Active Substance: ONDANSETRON HYDROCHLORIDE
     Dosage: 8 MG (1 TABLET), EVERY 12 HOURS)
     Route: 048
  6. SUTENT [Suspect]
     Active Substance: SUNITINIB MALATE
     Indication: GASTROINTESTINAL STROMAL TUMOUR
     Dosage: 50 MG, CYCLIC (4 WEEKS ON 2 WEEKS OFF, D1-D28, Q 42D)
     Route: 048
     Dates: start: 20141213, end: 20160226
  7. FLONASE [Concomitant]
     Active Substance: FLUTICASONE PROPIONATE
     Dosage: INSTILL 2 SPRAYS INTO BOTH NOSTRILS EVERY DAY
     Route: 045
  8. SUTENT [Suspect]
     Active Substance: SUNITINIB MALATE
     Dosage: 50 MG, CYCLIC (1 TABLET ONCE DAILY 2 WEEKS, 1 WEEK OFF)
     Route: 048
     Dates: start: 20141209
  9. ECOTRIN [Concomitant]
     Active Substance: ASPIRIN
     Dosage: 81 MG, UNK
  10. KLONOPIN [Concomitant]
     Active Substance: CLONAZEPAM
     Dosage: 1 MG (1 TABLET), AT BEDTIME
     Route: 048
  11. CARDURA [Concomitant]
     Active Substance: DOXAZOSIN MESYLATE
     Dosage: 2 MG (1 TABLET), EVERYDAY
     Route: 048
  12. FLOMAX [Concomitant]
     Active Substance: TAMSULOSIN HYDROCHLORIDE
     Dosage: 0.4 MG (1 CAPSULE),EVERY DAY
     Route: 048
  13. HYDROCODONE [Concomitant]
     Active Substance: HYDROCODONE
     Indication: PAIN
     Dosage: UNK, AS NEEDED
  14. APRESOLINE HYDROCHLORIDE [Concomitant]
     Active Substance: HYDRALAZINE HYDROCHLORIDE
     Dosage: 100 MG, THREE TIMES DAILY
     Route: 048
  15. NORCO [Concomitant]
     Active Substance: ACETAMINOPHEN\HYDROCODONE BITARTRATE
     Dosage: UNK [HYDROCODONE BITARTRATE 10 MG] / [PARACETAMOL 325 MG]
  16. IRON [Concomitant]
     Active Substance: IRON
     Dosage: UNK
     Route: 048
  17. SUTENT [Suspect]
     Active Substance: SUNITINIB MALATE
     Dosage: 37.5 MG, CYCLIC [PO QD 2 WEEKS, THEN 1 WEEK OFF]
     Route: 048
     Dates: start: 20160916
  18. MULTIVITAMIN [Concomitant]
     Active Substance: VITAMINS
     Dosage: UNK
     Route: 048
  19. VITAMIN B12 [Concomitant]
     Active Substance: CYANOCOBALAMIN
     Dosage: UNK
     Route: 048
  20. LISINOPRIL. [Concomitant]
     Active Substance: LISINOPRIL
     Dosage: UNK
  21. CATAPRES [Concomitant]
     Active Substance: CLONIDINE HYDROCHLORIDE
     Indication: HYPERTENSION
     Dosage: 0.1 MG, AS NEEDED
     Route: 048

REACTIONS (12)
  - Malaise [Unknown]
  - Nausea [Unknown]
  - Hyperkalaemia [Unknown]
  - Headache [Unknown]
  - Cough [Unknown]
  - Weight increased [Unknown]
  - Neoplasm progression [Unknown]
  - Weight decreased [Recovered/Resolved]
  - Drug dose omission [Unknown]
  - Renal failure [Unknown]
  - Dysgeusia [Unknown]
  - Intestinal obstruction [Unknown]
